FAERS Safety Report 13900785 (Version 1)
Quarter: 2017Q3

REPORT INFORMATION
  Report Type: Spontaneous
  Country: US (occurrence: US)
  Receive Date: 20170823
  Receipt Date: 20170823
  Transmission Date: 20171127
  Serious: Yes (Hospitalization, Other)
  Sender: FDA-Public Use
  Company Number: US-SHIRE-US201718659

PATIENT
  Sex: Male

DRUGS (1)
  1. GATTEX [Suspect]
     Active Substance: TEDUGLUTIDE\WATER
     Indication: SHORT-BOWEL SYNDROME
     Dosage: 0.2500 ML, 1X/DAY:QD
     Route: 065
     Dates: start: 20170611

REACTIONS (3)
  - Device related infection [Unknown]
  - Flatulence [Unknown]
  - Deep vein thrombosis [Unknown]
